FAERS Safety Report 9736609 (Version 1)
Quarter: 2013Q4

REPORT INFORMATION
  Report Type: Spontaneous
  Country: US (occurrence: US)
  Receive Date: 20131206
  Receipt Date: 20131206
  Transmission Date: 20140711
  Serious: No
  Sender: FDA-Public Use
  Company Number: US-BIOGENIDEC-2013BI098481

PATIENT
  Sex: Female
  Weight: 72 kg

DRUGS (7)
  1. TECFIDERA [Suspect]
     Indication: PRODUCT USED FOR UNKNOWN INDICATION
     Route: 048
  2. ASPIRIN [Concomitant]
  3. FISH OIL [Concomitant]
  4. GLUCOSAMINE [Concomitant]
  5. XANAX [Concomitant]
  6. CALCIUM [Concomitant]
  7. ZYRTEC [Concomitant]

REACTIONS (1)
  - Urinary tract infection [Recovered/Resolved]
